FAERS Safety Report 6947512 (Version 5)
Quarter: 2015Q1

REPORT INFORMATION
  Report Type: Report from Study
  Country: DE (occurrence: DE)
  Receive Date: 20090320
  Receipt Date: 20150325
  Transmission Date: 20150721
  Serious: Yes (Life-Threatening, Hospitalization)
  Sender: FDA-Public Use
  Company Number: PHHO2009DE03493

PATIENT
  Age: 65 Year
  Sex: Male

DRUGS (5)
  1. SANDIMMUN OPTORAL [Suspect]
     Active Substance: CYCLOSPORINE
     Dosage: 2X500 MG
     Route: 048
     Dates: start: 20090309
  2. SANDIMMUN OPTORAL [Suspect]
     Active Substance: CYCLOSPORINE
     Dosage: 2X400 MG
     Route: 048
     Dates: start: 20090310, end: 20090311
  3. SANDIMMUN OPTORAL [Suspect]
     Active Substance: CYCLOSPORINE
     Dosage: 100 MG I.V. BID
     Route: 042
     Dates: start: 20090312
  4. MYFORTIC [Suspect]
     Active Substance: MYCOPHENOLATE SODIUM
     Indication: RENAL TRANSPLANT
     Dosage: 1440 MG
     Route: 048
     Dates: start: 20090307, end: 20090311
  5. SANDIMMUN OPTORAL [Suspect]
     Active Substance: CYCLOSPORINE
     Indication: RENAL TRANSPLANT
     Dosage: 2X550 MG
     Route: 048
     Dates: start: 20090307, end: 20090308

REACTIONS (6)
  - Multi-organ failure [Recovering/Resolving]
  - Duodenal ulcer perforation [Recovering/Resolving]
  - Peritonitis [Recovering/Resolving]
  - Abdominal pain [Recovering/Resolving]
  - Sepsis [Recovering/Resolving]
  - Complications of transplanted kidney [Recovering/Resolving]

NARRATIVE: CASE EVENT DATE: 20090310
